FAERS Safety Report 4500239-0 (Version None)
Quarter: 2004Q4

REPORT INFORMATION
  Report Type: 
  Country: None (occurrence: None)
  Receive Date: 20041109
  Receipt Date: 20041025
  Transmission Date: 20050328
  Serious: Yes (Other)
  Sender: FDA-Public Use
  Company Number: 04-000750

PATIENT
  Age: 47 Year
  Sex: Female
  Weight: 72.6 kg

DRUGS (3)
  1. FEMRING [Suspect]
     Indication: MENOPAUSAL SYMPTOMS
     Dosage: 0.05 MG, QD, VAGINAL
     Route: 067
     Dates: start: 20031201, end: 20041023
  2. VASORITE [Concomitant]
  3. AVANDIA [Concomitant]

REACTIONS (3)
  - DIABETES MELLITUS [None]
  - PHARMACEUTICAL PRODUCT COMPLAINT [None]
  - VAGINAL ODOUR [None]
